FAERS Safety Report 7341058-X (Version None)
Quarter: 2011Q1

REPORT INFORMATION
  Report Type: 
  Country: None (occurrence: None)
  Receive Date: 20110309
  Receipt Date: 20110304
  Transmission Date: 20110831
  Serious: Yes (Death, Other)
  Sender: FDA-Public Use
  Company Number: PHHY2011BR18708

PATIENT
  Age: 54 Year
  Sex: Female

DRUGS (1)
  1. AMIODARONE [Suspect]
     Indication: VENTRICULAR TACHYCARDIA

REACTIONS (3)
  - AMERICAN TRYPANOSOMIASIS [None]
  - GOITRE [None]
  - HYPERTHYROIDISM [None]
